FAERS Safety Report 21203464 (Version 1)
Quarter: 2022Q3

REPORT INFORMATION
  Report Type: Spontaneous
  Country: US (occurrence: US)
  Receive Date: 20220811
  Receipt Date: 20220811
  Transmission Date: 20221027
  Serious: No
  Sender: FDA-Public Use
  Company Number: US-PFIZER INC-202201042079

PATIENT
  Age: 72 Year
  Sex: Male
  Weight: 80.74 kg

DRUGS (1)
  1. LYRICA [Suspect]
     Active Substance: PREGABALIN
     Indication: Neuropathy peripheral
     Dosage: 100 MG, 4X/DAY

REACTIONS (7)
  - Product dose omission in error [Unknown]
  - Therapeutic product effect incomplete [Unknown]
  - Hypoacusis [Unknown]
  - Blood test abnormal [Unknown]
  - Depression [Not Recovered/Not Resolved]
  - Memory impairment [Unknown]
  - Burning sensation [Unknown]
